FAERS Safety Report 10195086 (Version 1)
Quarter: 2014Q2

REPORT INFORMATION
  Report Type: Spontaneous
  Country: US (occurrence: US)
  Receive Date: 20140526
  Receipt Date: 20140526
  Transmission Date: 20141212
  Serious: No
  Sender: FDA-Public Use
  Company Number: US-MERCK-1405USA011826

PATIENT
  Sex: Female

DRUGS (9)
  1. JANUVIA [Suspect]
     Indication: TYPE 2 DIABETES MELLITUS
     Dosage: 1 DF, QAM
     Route: 048
     Dates: start: 20100607
  2. AMARYL [Concomitant]
  3. NORVASC [Concomitant]
  4. PREVACID [Concomitant]
  5. GLIPIZIDE [Concomitant]
  6. CRESTOR [Concomitant]
  7. TRICOR (ADENOSINE) [Concomitant]
  8. LUMIGAN [Concomitant]
  9. ISTALOL [Concomitant]

REACTIONS (3)
  - Drug ineffective [Unknown]
  - Hypersensitivity [Unknown]
  - Pain in extremity [Unknown]
